FAERS Safety Report 5229847-9 (Version None)
Quarter: 2007Q1

REPORT INFORMATION
  Report Type: 
  Country: None (occurrence: None)
  Receive Date: 20070206
  Receipt Date: 20060919
  Transmission Date: 20070707
  Serious: No
  Sender: FDA-Public Use
  Company Number: US-GLAXOSMITHKLINE-A0559054A

PATIENT
  Age: 44 Year
  Sex: Female

DRUGS (3)
  1. PAXIL [Suspect]
     Indication: DEPRESSION
     Route: 048
     Dates: start: 19980605
  2. VALIUM [Concomitant]
  3. ESKALITH [Concomitant]
     Dates: start: 19980601, end: 19980601

REACTIONS (11)
  - ANXIETY [None]
  - DRUG WITHDRAWAL SYNDROME [None]
  - FATIGUE [None]
  - FEELING ABNORMAL [None]
  - FLUSHING [None]
  - HOT FLUSH [None]
  - NIGHT SWEATS [None]
  - PANIC REACTION [None]
  - POOR QUALITY SLEEP [None]
  - SLEEP DISORDER [None]
  - SOMNOLENCE [None]
